FAERS Safety Report 19877322 (Version 1)
Quarter: 2021Q3

REPORT INFORMATION
  Report Type: Spontaneous
  Country: US (occurrence: US)
  Receive Date: 20210923
  Receipt Date: 20210923
  Transmission Date: 20211014
  Serious: Yes (Disabling)
  Sender: FDA-Public Use
  Company Number: None

PATIENT
  Age: 80 Year
  Sex: Male
  Weight: 94.5 kg

DRUGS (5)
  1. VITAMIN D [Concomitant]
     Active Substance: VITAMIN D NOS
  2. MULTIVITAMIN [Concomitant]
     Active Substance: VITAMINS
  3. VITAMIN B12 [Concomitant]
     Active Substance: CYANOCOBALAMIN
  4. CIPROFLOXACIN [CIPROFLOXACIN HCL] 500 MG , GENERIC FOR CIPRO [Suspect]
     Active Substance: CIPROFLOXACIN HYDROCHLORIDE
     Indication: TOOTH ABSCESS
     Route: 048
     Dates: start: 20210703, end: 20210713
  5. CIPROFLOXACIN [CIPROFLOXACIN HCL] 500 MG , GENERIC FOR CIPRO [Suspect]
     Active Substance: CIPROFLOXACIN HYDROCHLORIDE
     Indication: BACTERIAL INFECTION
     Route: 048
     Dates: start: 20210703, end: 20210713

REACTIONS (15)
  - Condition aggravated [None]
  - Skin wrinkling [None]
  - Skin disorder [None]
  - Eye irritation [None]
  - Feeling cold [None]
  - Tremor [None]
  - Feeling jittery [None]
  - Arthralgia [None]
  - Neuralgia [None]
  - Electric shock sensation [None]
  - Abdominal distension [None]
  - Deafness [None]
  - Joint swelling [None]
  - Erythema [None]
  - Hyperhidrosis [None]

NARRATIVE: CASE EVENT DATE: 20210703
